FAERS Safety Report 11225971 (Version 4)
Quarter: 2016Q1

REPORT INFORMATION
  Report Type: Report from Study
  Country: JP (occurrence: JP)
  Receive Date: 20150629
  Receipt Date: 20160316
  Transmission Date: 20160525
  Serious: Yes (Hospitalization, Other)
  Sender: FDA-Public Use
  Company Number: JP-ASTELLAS-2015JP009026

PATIENT
  Age: 52 Year
  Sex: Female
  Weight: 53 kg

DRUGS (28)
  1. MIRABEGRON [Suspect]
     Active Substance: MIRABEGRON
     Indication: HYPERTONIC BLADDER
     Route: 048
     Dates: start: 20150122, end: 2015
  2. REBAMIPIDE [Concomitant]
     Active Substance: REBAMIPIDE
     Indication: RADIUS FRACTURE
     Route: 048
     Dates: start: 20150529, end: 20150630
  3. ADALAT [Concomitant]
     Active Substance: NIFEDIPINE
     Indication: HYPERTENSION
     Route: 048
     Dates: start: 20150603, end: 20150603
  4. ULTIVA [Concomitant]
     Active Substance: REMIFENTANIL HYDROCHLORIDE
     Indication: RADIUS FRACTURE
     Dosage: ADEQUATE DOSE
     Route: 041
     Dates: start: 20150603, end: 20150603
  5. ROPION [Concomitant]
     Active Substance: FLURBIPROFEN AXETIL
     Indication: RADIUS FRACTURE
     Dosage: ADEQUATE DOSE
     Route: 041
     Dates: start: 20150603, end: 20150603
  6. ESLAX [Concomitant]
     Active Substance: ROCURONIUM BROMIDE
     Indication: RADIUS FRACTURE
     Dosage: ADEQUATE DOSE
     Route: 041
     Dates: start: 20150603, end: 20150603
  7. VESICARE [Suspect]
     Active Substance: SOLIFENACIN SUCCINATE
     Indication: HYPERTONIC BLADDER
     Route: 048
     Dates: start: 20150205, end: 2015
  8. VESICARE [Suspect]
     Active Substance: SOLIFENACIN SUCCINATE
     Route: 048
     Dates: start: 2015, end: 20160203
  9. NORMAL SALINE [Concomitant]
     Active Substance: SODIUM CHLORIDE
     Indication: RADIUS FRACTURE
     Dosage: ADEQUATE DOSE
     Route: 041
     Dates: start: 20150603, end: 20150603
  10. VEEN-F [Concomitant]
     Indication: RADIUS FRACTURE
     Dosage: ADEQUATE DOSE
     Route: 041
     Dates: start: 20150603, end: 20150603
  11. SUMILU [Concomitant]
     Active Substance: FELBINAC
     Indication: SCIATICA
     Dosage: ADEQUATE DOSE, AS NEEDED
     Route: 061
  12. VOLTAREN [Concomitant]
     Active Substance: DICLOFENAC SODIUM
     Indication: RADIUS FRACTURE
     Route: 054
     Dates: start: 20150603, end: 20150630
  13. CEFAZOLIN SODIUM. [Concomitant]
     Active Substance: CEFAZOLIN SODIUM
     Indication: RADIUS FRACTURE
     Dosage: ADEQUATE DOSE
     Route: 041
     Dates: start: 20150603, end: 20150604
  14. PERDIPINE [Concomitant]
     Active Substance: NICARDIPINE HYDROCHLORIDE
     Indication: RADIUS FRACTURE
     Dosage: ADEQUATE DOSE
     Route: 041
     Dates: start: 20150603, end: 20150603
  15. SUPRANE [Concomitant]
     Active Substance: DESFLURANE
     Indication: RADIUS FRACTURE
     Dosage: ADEQUATE DOSE
     Route: 055
     Dates: start: 20150603, end: 20150603
  16. NORMAL SALINE [Concomitant]
     Active Substance: SODIUM CHLORIDE
     Indication: RADIUS FRACTURE
     Dosage: ADEQUATE DOSE
     Route: 041
     Dates: start: 20150603, end: 20150603
  17. MIRABEGRON [Suspect]
     Active Substance: MIRABEGRON
     Route: 048
     Dates: start: 2015, end: 20160203
  18. BETANIS [Suspect]
     Active Substance: MIRABEGRON
     Indication: HYPERTONIC BLADDER
     Route: 048
     Dates: start: 20120117, end: 20150121
  19. REBAMIPIDE [Concomitant]
     Active Substance: REBAMIPIDE
     Indication: GASTRITIS PROPHYLAXIS
     Route: 048
  20. LACTEC                             /00490001/ [Concomitant]
     Indication: RADIUS FRACTURE
     Dosage: ADEQUATE DOSE
     Route: 041
     Dates: start: 20150603, end: 20150604
  21. LOXOPROFEN SODIUM [Concomitant]
     Active Substance: LOXOPROFEN SODIUM
     Indication: RADIUS FRACTURE
     Route: 048
     Dates: start: 20150529, end: 20150630
  22. BRIDION [Concomitant]
     Active Substance: SUGAMMADEX
     Indication: RADIUS FRACTURE
     Dosage: ADEQUATE DOSE
     Route: 041
     Dates: start: 20150603, end: 20150603
  23. CELECOX [Concomitant]
     Active Substance: CELECOXIB
     Indication: SCIATICA
     Route: 048
  24. LIMARMONE [Concomitant]
     Indication: SCIATICA
     Route: 048
  25. VEEN D [Concomitant]
     Active Substance: CALCIUM CHLORIDE\DEXTROSE\POTASSIUM CHLORIDE\SODIUM ACETATE\SODIUM CHLORIDE
     Indication: RADIUS FRACTURE
     Dosage: ADEQUATE DOSE
     Route: 041
     Dates: start: 20150603, end: 20150604
  26. PROPOFOL. [Concomitant]
     Active Substance: PROPOFOL
     Indication: RADIUS FRACTURE
     Dosage: ADEQUATE DOSE
     Route: 041
     Dates: start: 20150603, end: 20150603
  27. FENTANYL. [Concomitant]
     Active Substance: FENTANYL
     Indication: RADIUS FRACTURE
     Dosage: ADEQUATE DOSE
     Route: 041
     Dates: start: 20150603, end: 20150603
  28. NORMAL SALINE [Concomitant]
     Active Substance: SODIUM CHLORIDE
     Indication: RADIUS FRACTURE
     Dosage: ADEQUATE DOSE
     Route: 041
     Dates: start: 20150603, end: 20150603

REACTIONS (3)
  - Radius fracture [Recovering/Resolving]
  - Abdominal discomfort [Not Recovered/Not Resolved]
  - Hypertension [Not Recovered/Not Resolved]

NARRATIVE: CASE EVENT DATE: 20150301
